FAERS Safety Report 15639792 (Version 1)
Quarter: 2018Q4

REPORT INFORMATION
  Report Type: Spontaneous
  Country: US (occurrence: US)
  Receive Date: 20181120
  Receipt Date: 20181120
  Transmission Date: 20190205
  Serious: No
  Sender: FDA-Public Use
  Company Number: US-ENDO PHARMACEUTICALS INC-2018-041501

PATIENT
  Sex: Male

DRUGS (2)
  1. ALPRAZOLAM TABLETS [Suspect]
     Active Substance: ALPRAZOLAM
     Indication: PANIC ATTACK
     Dosage: UNK, UNKNOWN
     Route: 065
  2. ALPRAZOLAM TABLETS [Suspect]
     Active Substance: ALPRAZOLAM
     Indication: ANXIETY

REACTIONS (3)
  - Anxiety [Unknown]
  - Adverse event [Unknown]
  - Panic attack [Unknown]
